FAERS Safety Report 6308613-7 (Version None)
Quarter: 2009Q3

REPORT INFORMATION
  Report Type: 
  Country: None (occurrence: None)
  Receive Date: 20090813
  Receipt Date: 20090611
  Transmission Date: 20100115
  Serious: Yes (Hospitalization)
  Sender: FDA-Public Use
  Company Number: SE-ASTRAZENECA-2009SE01152

PATIENT
  Age: 499 Month
  Sex: Female

DRUGS (13)
  1. ATENOLOL [Suspect]
     Route: 048
  2. EGAZIL DURETTER [Suspect]
  3. SOMATROPIN [Suspect]
     Indication: HYPOPITUITARISM
     Route: 058
     Dates: start: 20021204
  4. CLOZAPINE [Suspect]
  5. CITALOPRAM HYDROBROMIDE [Suspect]
  6. ALVEDON [Concomitant]
     Indication: ANALGESIC THERAPY
     Dates: start: 20020108
  7. BEHEPAN [Concomitant]
     Indication: VITAMIN B12 DEFICIENCY
     Dates: start: 20070206
  8. DEXTROPROPOXYPHENE NAPSILATE [Concomitant]
     Indication: ANALGESIC THERAPY
     Dates: start: 20020108
  9. FEMASEKVENS [Concomitant]
     Indication: HYPOGONADISM
     Dates: start: 20060803
  10. HYDROCORTISONE [Concomitant]
     Indication: BLOOD CORTISOL DECREASED
     Dates: start: 20060927
  11. LEVOTHYROXINE SODIUM [Concomitant]
     Indication: HYPOTHYROIDISM
     Dates: start: 20050921
  12. SIMVASTATIN [Concomitant]
     Indication: HYPERLIPIDAEMIA
     Dates: start: 20050418
  13. ASPIRIN [Concomitant]
     Indication: ANTIPLATELET THERAPY

REACTIONS (2)
  - ACCIDENTAL EXPOSURE [None]
  - LOSS OF CONSCIOUSNESS [None]
